FAERS Safety Report 9331378 (Version 1)
Quarter: 2013Q2

REPORT INFORMATION
  Report Type: Other
  Country: GB (occurrence: GB)
  Receive Date: 20130605
  Receipt Date: 20130605
  Transmission Date: 20140414
  Serious: Yes (Disabling)
  Sender: FDA-Public Use
  Company Number: GB-WATSON-2013-09518

PATIENT
  Age: 85 Year
  Sex: Female
  Weight: 80 kg

DRUGS (5)
  1. CLARITHROMYCIN (UNKNOWN) [Suspect]
     Indication: VULVAL ABSCESS
     Dosage: 500 MG, BID
     Route: 048
     Dates: start: 20130502, end: 20130507
  2. ATENOLOL [Concomitant]
     Indication: HYPERTENSION
     Dosage: 25 MG, UNKNOWN, STARTED SEVERAL YEARS AGO
     Route: 048
  3. SIMVASTATIN [Concomitant]
     Indication: PRODUCT USED FOR UNKNOWN INDICATION
     Dosage: 40 MG, DAILY, STARTED SEVERAL YEARS AGO. OMITTED
     Route: 065
  4. LISINOPRIL [Concomitant]
     Indication: PRODUCT USED FOR UNKNOWN INDICATION
     Dosage: 30 MG, DAILY, STARTED SEVERAL YEARS AGO
     Route: 065
  5. ALENDRONIC ACID [Concomitant]
     Indication: OSTEOPOROSIS
     Dosage: 70 MG, UNKNOWN, STARTED SEVERAL YEARS AGO
     Route: 048

REACTIONS (2)
  - Deafness [Unknown]
  - Hyperacusis [Unknown]
